FAERS Safety Report 9789412 (Version 1)
Quarter: 2013Q4

REPORT INFORMATION
  Report Type: Spontaneous
  Country: CH (occurrence: CH)
  Receive Date: 20131231
  Receipt Date: 20131231
  Transmission Date: 20140711
  Serious: Yes (Other)
  Sender: FDA-Public Use
  Company Number: CH-ACTAVISPR-2013-23720

PATIENT
  Age: 43 Year
  Sex: Male
  Weight: 80 kg

DRUGS (2)
  1. OXALIPLATIN (UNKNOWN) [Suspect]
     Indication: MULTIPLE SCLEROSIS
     Dosage: 40 MG, UNK
     Route: 042
     Dates: start: 201103, end: 201109
  2. XELODA [Suspect]
     Indication: MULTIPLE SCLEROSIS
     Dosage: 20 MG, UNK
     Route: 048
     Dates: start: 201103, end: 201109

REACTIONS (1)
  - Multiple sclerosis [Unknown]
